FAERS Safety Report 6254882-1 (Version None)
Quarter: 2009Q3

REPORT INFORMATION
  Report Type: 
  Country: None (occurrence: None)
  Receive Date: 20090702
  Receipt Date: 20090629
  Transmission Date: 20100115
  Serious: Yes (Other)
  Sender: FDA-Public Use
  Company Number: US-ASTRAZENECA-2009UW18126

PATIENT
  Age: 81 Year
  Sex: Female
  Weight: 59.9 kg

DRUGS (3)
  1. CRESTOR [Suspect]
     Indication: BLOOD CHOLESTEROL INCREASED
     Route: 048
     Dates: start: 20060101
  2. TOPROL-XL [Concomitant]
     Route: 048
  3. AVALIDE [Concomitant]

REACTIONS (2)
  - BLOOD BILIRUBIN INCREASED [None]
  - HEPATIC CIRRHOSIS [None]
